FAERS Safety Report 25275567 (Version 2)
Quarter: 2025Q2

REPORT INFORMATION
  Report Type: Report from Study
  Country: US (occurrence: US)
  Receive Date: 20250506
  Receipt Date: 20250604
  Transmission Date: 20250717
  Serious: Yes (Hospitalization)
  Sender: ABBVIE
  Company Number: US-ABBVIE-6265382

PATIENT
  Age: 66 Year
  Sex: Female

DRUGS (1)
  1. CREON [Suspect]
     Active Substance: PANCRELIPASE AMYLASE\PANCRELIPASE LIPASE\PANCRELIPASE PROTEASE
     Indication: Pancreatic failure
     Dosage: 36000 UNITS
     Route: 048
     Dates: start: 20250327

REACTIONS (8)
  - Diarrhoea [Recovered/Resolved]
  - Muscle spasms [Unknown]
  - Viral infection [Recovering/Resolving]
  - Asthenia [Recovering/Resolving]
  - Sinusitis [Recovering/Resolving]
  - Pyrexia [Recovering/Resolving]
  - Hepatic steatosis [Unknown]
  - Fatigue [Recovering/Resolving]

NARRATIVE: CASE EVENT DATE: 20250101
